FAERS Safety Report 20646659 (Version 8)
Quarter: 2023Q1

REPORT INFORMATION
  Report Type: Report from Study
  Country: CN (occurrence: None)
  Receive Date: 20220329
  Receipt Date: 20230320
  Transmission Date: 20230417
  Serious: Yes (Hospitalization)
  Sender: FDA-Public Use
  Company Number: CN-ROCHE-2880266

PATIENT
  Age: 68 Year
  Sex: Female
  Weight: 51 kg

DRUGS (31)
  1. TIRAGOLUMAB [Suspect]
     Active Substance: TIRAGOLUMAB
     Indication: Oesophageal squamous cell carcinoma metastatic
     Dosage: ON 13/JUL/2021, RECEIVED MOST RECENT DOSE OF BLINDED TIRAGOLUMAB PRIOR TO ADVERSE EVENT AND SERIOUS
     Route: 042
     Dates: start: 20210531
  2. ATEZOLIZUMAB [Suspect]
     Active Substance: ATEZOLIZUMAB
     Indication: Oesophageal squamous cell carcinoma metastatic
     Dosage: ON 13/JUL/2021, RECEIVED MOST RECENT DOSE OF BLINDED ATEZOLIZUMAB PRIOR TO ADVERSE EVENT AND SERIOUS
     Route: 041
     Dates: start: 20210531
  3. PACLITAXEL [Suspect]
     Active Substance: PACLITAXEL
     Indication: Oesophageal squamous cell carcinoma metastatic
     Dosage: ON 13/JUL/2021, RECEIVED MOST RECENT DOSE OF PACLITAXEL (265 MG) PRIOR TO ADVERSE EVENT AND SERIOUS
     Route: 042
     Dates: start: 20210531
  4. CISPLATIN [Suspect]
     Active Substance: CISPLATIN
     Indication: Oesophageal squamous cell carcinoma metastatic
     Dosage: ON 13/JUL/2021, RECEIVED MOST RECENT DOSE OF CISPLATIN (100 MG) PRIOR TO ADVERSE EVENT AND SERIOUS A
     Route: 042
     Dates: start: 20210531
  5. PANTOPRAZOLE SODIUM [Concomitant]
     Active Substance: PANTOPRAZOLE SODIUM
     Dates: start: 20210522, end: 20210728
  6. SANGUISORBA OFFICINALIS [Concomitant]
     Indication: White blood cell count decreased
     Dates: start: 20210624, end: 20210630
  7. SANGUISORBA OFFICINALIS [Concomitant]
     Indication: Leukopenia
     Dosage: 4 TABLET
     Route: 048
     Dates: start: 20210701, end: 20210710
  8. SANGUISORBA OFFICINALIS [Concomitant]
     Dates: start: 20210715, end: 20210720
  9. DEXAMETHASONE SODIUM PHOSPHATE [Concomitant]
     Active Substance: DEXAMETHASONE SODIUM PHOSPHATE
     Indication: Upper respiratory tract infection
     Route: 042
     Dates: start: 20210729, end: 20210729
  10. DEXAMETHASONE SODIUM PHOSPHATE [Concomitant]
     Active Substance: DEXAMETHASONE SODIUM PHOSPHATE
     Route: 042
     Dates: start: 20210713, end: 20210715
  11. TROPISETRON [Concomitant]
     Active Substance: TROPISETRON
     Indication: Nausea
     Dates: start: 20210713, end: 20210713
  12. TROPISETRON [Concomitant]
     Active Substance: TROPISETRON
     Dates: start: 20210714, end: 20210715
  13. METOCLOPRAMIDE [Concomitant]
     Active Substance: METOCLOPRAMIDE
     Dates: start: 20210714, end: 20210715
  14. METOCLOPRAMIDE [Concomitant]
     Active Substance: METOCLOPRAMIDE
     Dates: start: 20210713, end: 20210713
  15. COMPOUND AMINO ACID (18AA-I) [Concomitant]
     Route: 015
     Dates: start: 20210728, end: 20210818
  16. ONDANSETRON HYDROCHLORIDE [Concomitant]
     Active Substance: ONDANSETRON HYDROCHLORIDE
     Indication: Nausea
     Dosage: ONGOING NO
     Dates: start: 20210715, end: 20210818
  17. VITAMIN C [Concomitant]
     Active Substance: ASCORBIC ACID
     Dosage: ONGOING NO
     Dates: start: 20210728, end: 20210809
  18. VITAMIN B6 [Concomitant]
     Active Substance: PYRIDOXINE HYDROCHLORIDE
     Dates: start: 20210728, end: 20210809
  19. POTASSIUM CHLORIDE [Concomitant]
     Active Substance: POTASSIUM CHLORIDE
     Indication: Hypokalaemia
     Dosage: ONGOING NO
     Dates: start: 20210728, end: 20210811
  20. POTASSIUM CHLORIDE [Concomitant]
     Active Substance: POTASSIUM CHLORIDE
     Dosage: GIVEN FOR PROPHYLAXIS YES
     Dates: start: 20210812, end: 20210814
  21. SODIUM CHLORIDE [Concomitant]
     Active Substance: SODIUM CHLORIDE
     Dosage: ONGOING NO
     Dates: start: 20210729, end: 20210814
  22. APREPITANT [Concomitant]
     Active Substance: APREPITANT
     Indication: Nausea
     Dosage: ONGOING NO
     Dates: start: 20210731, end: 20210818
  23. PRUCALOPRIDE SUCCINATE [Concomitant]
     Active Substance: PRUCALOPRIDE SUCCINATE
     Indication: Abdominal distension
     Dates: start: 20210803, end: 20210817
  24. COMPOUND DIGESTIVE ENZYME CAPSULES (II) [Concomitant]
     Dosage: ONGOING NO
     Dates: start: 20210803, end: 20210821
  25. METOPROLOL TARTRATE [Concomitant]
     Active Substance: METOPROLOL TARTRATE
     Indication: Cardiac failure
     Dosage: ONGOING NO
     Dates: start: 20210817, end: 20210826
  26. GLYCERIN [Concomitant]
     Active Substance: GLYCERIN
     Indication: Abdominal distension
     Dosage: ONGOING NO
     Dates: start: 20210804, end: 20210804
  27. ACETAMINOPHEN\TRAMADOL HYDROCHLORIDE [Concomitant]
     Active Substance: ACETAMINOPHEN\TRAMADOL HYDROCHLORIDE
     Indication: Pain
     Dates: start: 20210805, end: 20210808
  28. LIDOCAINE HYDROCHLORIDE [Concomitant]
     Active Substance: LIDOCAINE HYDROCHLORIDE
     Indication: Infiltration anaesthesia
     Dosage: ONGOING NO
     Dates: start: 20210809, end: 20210809
  29. FUROSEMIDE [Concomitant]
     Active Substance: FUROSEMIDE
     Indication: Polyuria
     Dosage: ONGOING NO
     Dates: start: 20210809, end: 20210809
  30. DIPHENHYDRAMINE [Concomitant]
     Active Substance: DIPHENHYDRAMINE
     Dates: start: 20210713, end: 20210715
  31. RECOMBINANT HUMAN GRANULOCYTE COLONY STIMULATING FACTOR (RHG-CSF) INJE [Concomitant]
     Indication: White blood cell count increased
     Dates: start: 20210721, end: 20210722

REACTIONS (1)
  - Upper respiratory tract infection [Recovered/Resolved]

NARRATIVE: CASE EVENT DATE: 20210728
